FAERS Safety Report 8507055-3 (Version None)
Quarter: 2012Q3

REPORT INFORMATION
  Report Type: 
  Country: None (occurrence: None)
  Receive Date: 20120712
  Receipt Date: 20120627
  Transmission Date: 20120928
  Serious: Yes (Hospitalization)
  Sender: FDA-Public Use
  Company Number: JP-SHIRE-ALL1-2012-03278

PATIENT
  Age: 73 Year
  Sex: Male

DRUGS (5)
  1. DOPS [Concomitant]
     Indication: ORTHOSTATIC HYPOTENSION
     Dosage: 1200 MG, UNKNOWN(12  100 MG TABLETS)
     Route: 048
  2. EFFORTIL [Concomitant]
     Indication: ORTHOSTATIC HYPOTENSION
     Dosage: 30 MG, UNKNOWN(SIX 5 MG TABLETS)
     Route: 048
  3. DIHYDERGOT                         /00017802/ [Concomitant]
     Indication: ORTHOSTATIC HYPOTENSION
     Dosage: 3 DF, UNKNOWN
     Route: 048
  4. RISUMIC [Concomitant]
     Indication: ORTHOSTATIC HYPOTENSION
     Dosage: 2 DF, UNKNOWN
     Route: 065
  5. MIDODRINE HYDROCHLORIDE [Suspect]
     Indication: ORTHOSTATIC HYPOTENSION
     Dosage: 2 MG, UNKNOWN (2 MG UNKNOWN FREQUENCY)
     Route: 048

REACTIONS (5)
  - DIVERTICULITIS [None]
  - INTESTINAL OBSTRUCTION [None]
  - COLITIS ISCHAEMIC [None]
  - INFECTION SUSCEPTIBILITY INCREASED [None]
  - PNEUMONIA [None]
